FAERS Safety Report 5262241-3 (Version None)
Quarter: 2007Q1

REPORT INFORMATION
  Report Type: 
  Country: None (occurrence: None)
  Receive Date: 20070308
  Receipt Date: 20070308
  Transmission Date: 20070707
  Serious: No
  Sender: FDA-Public Use
  Company Number: None

PATIENT
  Sex: Female
  Weight: 116.5744 kg

DRUGS (1)
  1. ZOCOR [Suspect]
     Dosage: 10 MG 1 X DAILY PO
     Route: 048

REACTIONS (4)
  - DYSPNOEA [None]
  - NAUSEA [None]
  - NERVOUSNESS [None]
  - VOMITING [None]
